FAERS Safety Report 9738438 (Version 2)
Quarter: 2013Q4

REPORT INFORMATION
  Report Type: Report from Study
  Country: FR (occurrence: FR)
  Receive Date: 20131208
  Receipt Date: 20131208
  Transmission Date: 20140711
  Serious: Yes (Death, Other)
  Sender: FDA-Public Use
  Company Number: FR-ROCHE-1308001

PATIENT
  Age: 53 Year
  Sex: Male
  Weight: 65 kg

DRUGS (3)
  1. ZELBORAF [Suspect]
     Indication: MALIGNANT MELANOMA
     Route: 048
     Dates: start: 20130529
  2. OXYCONTIN [Concomitant]
     Route: 048
     Dates: start: 20130528
  3. DUPHALAC [Concomitant]
     Indication: CONSTIPATION
     Route: 048
     Dates: start: 20130528

REACTIONS (4)
  - Disease progression [Fatal]
  - Photosensitivity reaction [Not Recovered/Not Resolved]
  - Nausea [Not Recovered/Not Resolved]
  - Abdominal pain upper [Not Recovered/Not Resolved]
